FAERS Safety Report 17733898 (Version 1)
Quarter: 2020Q2

REPORT INFORMATION
  Report Type: Report from Study
  Country: FI (occurrence: FI)
  Receive Date: 20200501
  Receipt Date: 20200501
  Transmission Date: 20200714
  Serious: Yes (Death)
  Sender: FDA-Public Use
  Company Number: FI-MYLANLABS-2020M1042582

PATIENT
  Age: 10 Year
  Sex: Female

DRUGS (2)
  1. AZATHIOPRINE. [Suspect]
     Active Substance: AZATHIOPRINE
     Indication: POLYARTHRITIS
     Dosage: UNK
     Route: 065
     Dates: start: 1998
  2. METHOTREXATE. [Suspect]
     Active Substance: METHOTREXATE
     Indication: POLYARTHRITIS
     Dosage: UNK
     Route: 065
     Dates: start: 1998

REACTIONS (5)
  - Pneumonia [Fatal]
  - Neutropenia [Fatal]
  - Candida sepsis [Fatal]
  - Acute respiratory distress syndrome [Fatal]
  - Cardiac failure [Fatal]
